FAERS Safety Report 12552795 (Version 1)
Quarter: 2016Q3

REPORT INFORMATION
  Report Type: Spontaneous
  Country: GB (occurrence: GB)
  Receive Date: 20160713
  Receipt Date: 20160713
  Transmission Date: 20161109
  Serious: Yes (Other)
  Sender: FDA-Public Use
  Company Number: GB-PFIZER INC-2016335671

PATIENT
  Age: 56 Year
  Sex: Male

DRUGS (7)
  1. IRINOTECAN HCL [Suspect]
     Active Substance: IRINOTECAN HYDROCHLORIDE
     Dosage: 1 MG, UNK
     Dates: start: 20160606
  2. ZOPICLONE [Concomitant]
     Active Substance: ZOPICLONE
     Dosage: 3.75 MG, UNK
  3. FLUOROURACIL. [Suspect]
     Active Substance: FLUOROURACIL
     Dosage: 4500 MG IN 120ML NORMAL SALINE (BAXTER SV2.5 FOLFUSOR)
     Dates: start: 20160606
  4. ZOMORPH [Concomitant]
     Active Substance: MORPHINE SULFATE
     Dosage: 10 MG, UNK
  5. TRAMADOL. [Concomitant]
     Active Substance: TRAMADOL
     Dosage: 50 MG, UNK
  6. PARACETAMOL [Concomitant]
     Active Substance: ACETAMINOPHEN
     Dosage: 500 MG, UNK
  7. FLUOROURACIL. [Suspect]
     Active Substance: FLUOROURACIL
     Dosage: 750 MG IN 15ML PRE-FILLED SYRINGE
     Dates: start: 20160606

REACTIONS (2)
  - Chromaturia [Unknown]
  - Dysuria [Unknown]

NARRATIVE: CASE EVENT DATE: 20160613
